FAERS Safety Report 4528497-7 (Version None)
Quarter: 2004Q4

REPORT INFORMATION
  Report Type: 
  Country: None (occurrence: None)
  Receive Date: 20041216
  Receipt Date: 20040824
  Transmission Date: 20050328
  Serious: No
  Sender: FDA-Public Use
  Company Number: US-BRISTOL-MYERS SQUIBB COMPANY-12683587

PATIENT
  Sex: Male

DRUGS (2)
  1. HALOG CREAM 0.1% [Suspect]
     Indication: DERMATITIS ALLERGIC
     Route: 061
  2. BACITRACIN ZINC [Suspect]
     Indication: SKIN GRAFT
     Route: 061

REACTIONS (1)
  - SKIN DISCOLOURATION [None]
